FAERS Safety Report 5383458-3 (Version None)
Quarter: 2007Q3

REPORT INFORMATION
  Report Type: 
  Country: None (occurrence: None)
  Receive Date: 20070710
  Receipt Date: 20070704
  Transmission Date: 20080115
  Serious: Yes (Hospitalization)
  Sender: FDA-Public Use
  Company Number: IT-ROXANE LABORATORIES, INC-2007-IT-00250IT

PATIENT
  Age: 38 Year
  Sex: Male

DRUGS (4)
  1. PARACETAMOL [Suspect]
  2. CIPROFLOXACIN HCL [Suspect]
  3. ALPRABOXAL [Suspect]
  4. NORAMIDOPRIN [Suspect]

REACTIONS (1)
  - TOXIC EPIDERMAL NECROLYSIS [None]
